FAERS Safety Report 23833794 (Version 1)
Quarter: 2024Q2

REPORT INFORMATION
  Report Type: Report from Study
  Country: CO (occurrence: CO)
  Receive Date: 20240509
  Receipt Date: 20240509
  Transmission Date: 20240716
  Serious: Yes (Death)
  Sender: FDA-Public Use
  Company Number: CO-JNJFOC-20240515338

PATIENT
  Age: 70 Year
  Sex: Male
  Weight: 48 kg

DRUGS (1)
  1. IMBRUVICA [Suspect]
     Active Substance: IBRUTINIB
     Indication: Chronic lymphocytic leukaemia
     Route: 048
     Dates: start: 20200621, end: 20240407

REACTIONS (1)
  - Dengue fever [Fatal]

NARRATIVE: CASE EVENT DATE: 20240407
